FAERS Safety Report 21658287 (Version 1)
Quarter: 2022Q4

REPORT INFORMATION
  Report Type: Spontaneous
  Country: JP (occurrence: JP)
  Receive Date: 20221129
  Receipt Date: 20221129
  Transmission Date: 20230112
  Serious: Yes (Life-Threatening, Hospitalization, Other)
  Sender: FDA-Public Use
  Company Number: JP-ABBVIE-22K-087-4393529-00

PATIENT
  Age: 52 Year
  Sex: Male
  Weight: 73 kg

DRUGS (13)
  1. HUMIRA [Suspect]
     Active Substance: ADALIMUMAB
     Indication: Colitis ulcerative
     Route: 058
     Dates: start: 20170911
  2. HUMIRA [Suspect]
     Active Substance: ADALIMUMAB
     Indication: Colitis ulcerative
     Route: 058
  3. AZATHIOPRINE [Concomitant]
     Active Substance: AZATHIOPRINE
     Indication: Colitis ulcerative
     Dosage: 100 MILLIGRAM
     Route: 048
  4. AZATHIOPRINE [Concomitant]
     Active Substance: AZATHIOPRINE
     Indication: Colitis ulcerative
     Route: 048
  5. LIALDA [Concomitant]
     Active Substance: MESALAMINE
     Indication: Colitis ulcerative
     Route: 048
  6. PENTASA [Concomitant]
     Active Substance: MESALAMINE
     Indication: Colitis ulcerative
     Route: 054
  7. ALLOPURINOL [Concomitant]
     Active Substance: ALLOPURINOL
     Indication: Hyperuricaemia
     Dosage: 100 MILLIGRAM
     Route: 048
  8. FENOFIBRATE [Concomitant]
     Active Substance: FENOFIBRATE
     Indication: Dyslipidaemia
     Route: 048
  9. TENELIGLIPTIN HYDROBROMIDE HYDRATE [Concomitant]
     Active Substance: TENELIGLIPTIN HYDROBROMIDE HYDRATE
     Indication: Diabetes mellitus
     Dosage: 20 MILLIGRAM
     Route: 048
  10. CISPLATIN [Concomitant]
     Active Substance: CISPLATIN
     Indication: Tongue neoplasm malignant stage unspecified
     Dates: start: 20220513
  11. CISPLATIN [Concomitant]
     Active Substance: CISPLATIN
     Indication: Tongue neoplasm malignant stage unspecified
     Dates: start: 20220513
  12. FLUOROURACIL [Concomitant]
     Active Substance: FLUOROURACIL
     Indication: Tongue neoplasm malignant stage unspecified
     Dates: start: 20220513
  13. FLUOROURACIL [Concomitant]
     Active Substance: FLUOROURACIL
     Indication: Tongue neoplasm malignant stage unspecified
     Dates: start: 20220513

REACTIONS (2)
  - Tongue neoplasm malignant stage unspecified [Recovered/Resolved]
  - Glossodynia [Unknown]

NARRATIVE: CASE EVENT DATE: 20220301
